FAERS Safety Report 9645319 (Version 3)
Quarter: 2014Q1

REPORT INFORMATION
  Report Type: Report from Study
  Country: US (occurrence: US)
  Receive Date: 20131025
  Receipt Date: 20140116
  Transmission Date: 20141002
  Serious: Yes (Hospitalization)
  Sender: FDA-Public Use
  Company Number: US-SA-2013SA107686

PATIENT
  Age: 54 Year
  Sex: Male

DRUGS (2)
  1. AUBAGIO [Suspect]
     Route: 065
     Dates: start: 20130829
  2. AUBAGIO [Suspect]
     Dosage: 3 MONTHS AGO
     Route: 065

REACTIONS (2)
  - Adverse event [Recovered/Resolved]
  - Irritability [Unknown]
